FAERS Safety Report 20110989 (Version 1)
Quarter: 2021Q4

REPORT INFORMATION
  Report Type: Spontaneous
  Country: IL (occurrence: IL)
  Receive Date: 20211124
  Receipt Date: 20211124
  Transmission Date: 20220304
  Serious: Yes (Death)
  Sender: FDA-Public Use
  Company Number: IL-BAXTER-2021BAX036839

PATIENT
  Age: 17 Year
  Sex: Male

DRUGS (2)
  1. CYCLOPHOSPHAMIDE [Suspect]
     Active Substance: CYCLOPHOSPHAMIDE
     Indication: Central nervous system vasculitis
     Dosage: SEVEN PULSES OF 500-750 MG/M2
     Route: 042
  2. PREDNISONE [Concomitant]
     Active Substance: PREDNISONE
     Indication: Central nervous system vasculitis
     Dosage: DAILY
     Route: 065

REACTIONS (3)
  - Dyspnoea [Fatal]
  - Chest pain [Fatal]
  - Cardiac arrest [Fatal]
